FAERS Safety Report 8618280-5 (Version None)
Quarter: 2012Q3

REPORT INFORMATION
  Report Type: 
  Country: None (occurrence: None)
  Receive Date: 20120824
  Receipt Date: 20120817
  Transmission Date: 20120928
  Serious: Yes (Other)
  Sender: FDA-Public Use
  Company Number: US-BIOGENIDEC-2012BI002193

PATIENT
  Sex: Female

DRUGS (3)
  1. AVONEX [Suspect]
     Route: 030
     Dates: start: 20101022, end: 20111112
  2. AVONEX [Suspect]
     Indication: MULTIPLE SCLEROSIS
     Route: 030
     Dates: start: 20081212
  3. AVONEX [Suspect]
     Route: 030
     Dates: start: 20120120, end: 20120810

REACTIONS (6)
  - VISION BLURRED [None]
  - HYPOAESTHESIA [None]
  - INJECTION SITE ERYTHEMA [None]
  - ISCHAEMIC STROKE [None]
  - INJECTION SITE HAEMATOMA [None]
  - INJECTION SITE MASS [None]
